FAERS Safety Report 24753516 (Version 1)
Quarter: 2024Q4

REPORT INFORMATION
  Report Type: Spontaneous
  Country: DE (occurrence: DE)
  Receive Date: 20241219
  Receipt Date: 20241219
  Transmission Date: 20250115
  Serious: Yes (Hospitalization)
  Sender: ELI LILLY AND COMPANY
  Company Number: None

PATIENT
  Age: 82 Year
  Sex: Female
  Weight: 54 kg

DRUGS (4)
  1. CYRAMZA [Suspect]
     Active Substance: RAMUCIRUMAB
     Indication: Gastric cancer
     Dosage: UNK UNK, UNKNOWN
     Route: 042
     Dates: start: 20240901, end: 20241202
  2. CYRAMZA [Suspect]
     Active Substance: RAMUCIRUMAB
     Indication: Lung neoplasm malignant
  3. CYRAMZA [Suspect]
     Active Substance: RAMUCIRUMAB
     Indication: Colorectal cancer stage I
  4. CYRAMZA [Suspect]
     Active Substance: RAMUCIRUMAB
     Indication: Hepatocellular carcinoma

REACTIONS (2)
  - Respiratory distress [Recovered/Resolved]
  - Pneumothorax spontaneous [Recovered/Resolved]

NARRATIVE: CASE EVENT DATE: 20241130
